FAERS Safety Report 21930800 (Version 1)
Quarter: 2023Q1

REPORT INFORMATION
  Report Type: Spontaneous
  Country: US (occurrence: US)
  Receive Date: 20230131
  Receipt Date: 20230131
  Transmission Date: 20230418
  Serious: Yes (Hospitalization, Other)
  Sender: FDA-Public Use
  Company Number: US-MYLANLABS-2023M1008711

PATIENT
  Age: 69 Year
  Sex: Female
  Weight: 133.8 kg

DRUGS (8)
  1. FUROSEMIDE [Suspect]
     Active Substance: FUROSEMIDE
     Indication: Fluid retention
     Dosage: 40 MG, BID (IN MORNING AND NIGHT)
     Route: 065
  2. FUROSEMIDE [Suspect]
     Active Substance: FUROSEMIDE
     Dosage: 40 MG, BID (IN MORNING AND NIGHT)
     Route: 065
  3. DILTIZEM [Concomitant]
     Dosage: UNK (IN THE MORNING)
     Route: 065
  4. RAMIPRIL [Concomitant]
     Active Substance: RAMIPRIL
     Dosage: UNK (IN THE MORNING)
     Route: 065
  5. ISOSORBIDE [Concomitant]
     Active Substance: ISOSORBIDE
     Dosage: UNK (IN THE MORNING)
     Route: 065
  6. PRILOSEC [Concomitant]
     Active Substance: OMEPRAZOLE MAGNESIUM
     Dosage: UNK (IN THE MORNING, HOUR OR TWO BEFORE THE ABOVE MEDICATIONS)
     Route: 065
  7. SIMVASTATIN [Concomitant]
     Active Substance: SIMVASTATIN
     Dosage: UNK (AT NIGHT)
     Route: 065
  8. HUMALOG [Concomitant]
     Active Substance: INSULIN LISPRO
     Dosage: UNK (AT NIGHT)
     Route: 065

REACTIONS (13)
  - Appendicitis perforated [Unknown]
  - Elephantiasis [Unknown]
  - Ear discomfort [Recovering/Resolving]
  - Abdominal discomfort [Unknown]
  - Sinusitis [Unknown]
  - Feeling abnormal [Unknown]
  - Head discomfort [Unknown]
  - Hot flush [Unknown]
  - Asthenia [Unknown]
  - Nervousness [Unknown]
  - Weight decreased [Unknown]
  - Fatigue [Unknown]
  - Product colour issue [Unknown]

NARRATIVE: CASE EVENT DATE: 20221116
